FAERS Safety Report 22370906 (Version 1)
Quarter: 2023Q2

REPORT INFORMATION
  Report Type: Spontaneous
  Country: HU (occurrence: HU)
  Receive Date: 20230526
  Receipt Date: 20230526
  Transmission Date: 20230722
  Serious: Yes (Other)
  Sender: FDA-Public Use
  Company Number: HU-ROCHE-2749934

PATIENT
  Age: 41 Year
  Sex: Female

DRUGS (9)
  1. CLONAZEPAM [Suspect]
     Active Substance: CLONAZEPAM
     Indication: Schizophrenia
     Dosage: AT THE END OF AUG/2010, (...) THE PATIENT INITIALLY RECEIVED PARENTERAL HALOPERIDOL WITH CLONAZEPAM
     Dates: start: 201008
  2. HALOPERIDOL [Suspect]
     Active Substance: HALOPERIDOL
     Dosage: AT THE END OF AUG/2010, (...) THE PATIENT INITIALLY RECEIVED PARENTERAL HALOPERIDOL WITH CLONAZEPAM
     Dates: start: 201008
  3. HALOPERIDOL [Suspect]
     Active Substance: HALOPERIDOL
     Dosage: SLIGHTLY REDUCED WITH THE ADMINISTRATION OF +1.5 MG HALOPERIDOL PER DAY
     Dates: start: 2011
  4. BUPROPION [Suspect]
     Active Substance: BUPROPION
  5. QUETIAPINE [Suspect]
     Active Substance: QUETIAPINE
     Dosage: IN 2017 (...) DURING THIS TREATMENT, THE PATIENT^S PHARMACOTHERAPY WAS SWITCHED TO A COMBINATION ...
     Dates: start: 2017
  6. ARIPIPRAZOLE [Suspect]
     Active Substance: ARIPIPRAZOLE
     Dosage: IN LATE NOV/2010, THE PATIENT WAS DISCHARGED FROM THE DEPARTMENT AFTER TWO WEEKS OF REHABILITATIO...
     Dates: start: 201011
  7. TRAZODONE [Suspect]
     Active Substance: TRAZODONE HYDROCHLORIDE
  8. ZIPRASIDONE [Suspect]
     Active Substance: ZIPRASIDONE
     Dosage: AFTER ONE YEAR, SHE WAS SWITCHED TO A DAILY DOSE OF 2 X 60 MG ZIPRASIDONE
  9. RISPERIDONE [Suspect]
     Active Substance: RISPERIDONE
     Dosage: AT THE END OF AUG/2010, (...) THE PATIENT INITIALLY RECEIVED PARENTERAL HALOPERIDOL WITH CLONAZEP...

REACTIONS (9)
  - Suicide attempt [Unknown]
  - Psychotic disorder [Unknown]
  - Drug dependence [Unknown]
  - Hallucination [Recovered/Resolved]
  - Hallucination, auditory [Unknown]
  - Weight increased [Unknown]
  - Vomiting [Unknown]
  - Insomnia [Unknown]
  - Sedation [Unknown]

NARRATIVE: CASE EVENT DATE: 20170101
